FAERS Safety Report 6507843-9 (Version None)
Quarter: 2009Q4

REPORT INFORMATION
  Report Type: 
  Country: None (occurrence: None)
  Receive Date: 20091221
  Receipt Date: 20091213
  Transmission Date: 20100525
  Serious: Yes (Other)
  Sender: FDA-Public Use
  Company Number: A0816147A

PATIENT
  Age: 29 Year
  Sex: Female

DRUGS (3)
  1. PROMACTA [Suspect]
     Indication: IDIOPATHIC THROMBOCYTOPENIC PURPURA
     Dosage: 75MG PER DAY
     Route: 048
     Dates: start: 20081201, end: 20090201
  2. IMMUNE GLOBULIN INTRAVENOUS (HUMAN) [Concomitant]
  3. SYNTHROID [Concomitant]

REACTIONS (2)
  - DRUG INEFFECTIVE [None]
  - THROMBOCYTOPENIA [None]
